FAERS Safety Report 8149262-8 (Version None)
Quarter: 2012Q1

REPORT INFORMATION
  Report Type: 
  Country: None (occurrence: None)
  Receive Date: 20120218
  Receipt Date: 20110920
  Transmission Date: 20120608
  Serious: No
  Sender: FDA-Public Use
  Company Number: US-ALLERGAN-1112510US

PATIENT
  Age: 50 Year
  Sex: Female

DRUGS (2)
  1. RADIANCE [Concomitant]
     Indication: PRODUCT USED FOR UNKNOWN INDICATION
  2. BOTOX COSMETIC [Suspect]
     Indication: SKIN WRINKLING
     Dosage: 24 UNITS, SINGLE
     Route: 030
     Dates: start: 20101207, end: 20101207

REACTIONS (7)
  - DYSPHAGIA [None]
  - FATIGUE [None]
  - HEADACHE [None]
  - PARAESTHESIA [None]
  - URTICARIA [None]
  - SINUS DISORDER [None]
  - RASH [None]
